FAERS Safety Report 8597057-3 (Version None)
Quarter: 2012Q3

REPORT INFORMATION
  Report Type: 
  Country: None (occurrence: None)
  Receive Date: 20120816
  Receipt Date: 20120807
  Transmission Date: 20120928
  Serious: Yes (Hospitalization)
  Sender: FDA-Public Use
  Company Number: IT-BIOGENIDEC-2011BI048250

PATIENT
  Age: 44 Year
  Sex: Male

DRUGS (3)
  1. LASIX [Concomitant]
     Indication: HYPERTENSION
  2. RAMIPRIL [Concomitant]
     Indication: HYPERTENSION
  3. TYSABRI [Suspect]
     Indication: RELAPSING-REMITTING MULTIPLE SCLEROSIS
     Route: 042
     Dates: start: 20090601, end: 20110601

REACTIONS (1)
  - MULTIPLE SCLEROSIS RELAPSE [None]
